FAERS Safety Report 9750427 (Version 1)
Quarter: 2013Q4

REPORT INFORMATION
  Report Type: Spontaneous
  Country: US (occurrence: US)
  Receive Date: 20131212
  Receipt Date: 20131212
  Transmission Date: 20140711
  Serious: No
  Sender: FDA-Public Use
  Company Number: US-TEVA-396850USA

PATIENT
  Age: 20 Year
  Sex: Female
  Weight: 47.67 kg

DRUGS (1)
  1. PARAGARD 380A [Suspect]
     Indication: CONTRACEPTION
     Route: 015
     Dates: start: 201211, end: 20130309

REACTIONS (4)
  - Abdominal pain [Recovered/Resolved]
  - Weight increased [Not Recovered/Not Resolved]
  - Mood altered [Recovered/Resolved]
  - Menorrhagia [Recovered/Resolved]
